FAERS Safety Report 15950674 (Version 2)
Quarter: 2019Q1

REPORT INFORMATION
  Report Type: Report from Study
  Country: US (occurrence: US)
  Receive Date: 20190212
  Receipt Date: 20190227
  Transmission Date: 20190417
  Serious: Yes (Hospitalization, Disabling)
  Sender: FDA-Public Use
  Company Number: US-BAUSCH-BL-2019-004124

PATIENT
  Age: 69 Year
  Sex: Male
  Weight: 90.8 kg

DRUGS (2)
  1. XIFAXAN [Suspect]
     Active Substance: RIFAXIMIN
     Route: 065
     Dates: start: 201902
  2. XIFAXAN [Suspect]
     Active Substance: RIFAXIMIN
     Indication: NON-ALCOHOLIC STEATOHEPATITIS
     Route: 065
     Dates: end: 201902

REACTIONS (8)
  - Anal incontinence [Recovered/Resolved]
  - Therapy cessation [Unknown]
  - Mental disorder [Recovered/Resolved]
  - Treatment noncompliance [Unknown]
  - Loss of consciousness [Recovered/Resolved]
  - Product availability issue [Unknown]
  - Cataract [Unknown]
  - Urinary incontinence [Recovered/Resolved]

NARRATIVE: CASE EVENT DATE: 201811
